FAERS Safety Report 11012808 (Version 1)
Quarter: 2015Q2

REPORT INFORMATION
  Report Type: Spontaneous
  Country: AT (occurrence: None)
  Receive Date: 20150409
  Receipt Date: 20150409
  Transmission Date: 20150821
  Serious: Yes (Hospitalization, Other)
  Sender: FDA-Public Use
  Company Number: AT2015GSK043942

PATIENT
  Age: 48 Year
  Sex: Female
  Weight: 58 kg

DRUGS (2)
  1. TIVICAY [Suspect]
     Active Substance: DOLUTEGRAVIR SODIUM
     Indication: HIV INFECTION
     Dosage: 1 D
     Route: 048
     Dates: start: 20141223, end: 20150318
  2. KIVEXA (ABACAVIR SUPHATE, LAMIVUDINE) [Concomitant]

REACTIONS (5)
  - Bulimia nervosa [None]
  - Weight increased [None]
  - Thirst [None]
  - Diabetes mellitus [None]
  - Fatigue [None]

NARRATIVE: CASE EVENT DATE: 20141223
